FAERS Safety Report 5671641-9 (Version None)
Quarter: 2008Q1

REPORT INFORMATION
  Report Type: 
  Country: None (occurrence: None)
  Receive Date: 20080313
  Receipt Date: 20080307
  Transmission Date: 20080703
  Serious: Yes (Life-Threatening, Hospitalization, Other)
  Sender: FDA-Public Use
  Company Number: 2008SP003990

PATIENT
  Age: 60 Year
  Sex: Female

DRUGS (5)
  1. EPTIFIBATIDE (S-P) (EPTIFIBATIDE) [Suspect]
     Indication: ACUTE CORONARY SYNDROME
     Dosage: ; ONCE; INBO, ; INDRP
     Dates: start: 20080211, end: 20080211
  2. EPTIFIBATIDE (S-P) (EPTIFIBATIDE) [Suspect]
     Indication: ACUTE CORONARY SYNDROME
     Dosage: ; ONCE; INBO, ; INDRP
     Dates: start: 20080211, end: 20080211
  3. ATENOLOL [Suspect]
     Indication: DRUG USE FOR UNKNOWN INDICATION
  4. ASPIRIN [Concomitant]
  5. CLOPIDOGREL /01220702/ [Concomitant]

REACTIONS (4)
  - BRADYCARDIA [None]
  - CARDIAC ARREST [None]
  - DIZZINESS [None]
  - INFUSION RELATED REACTION [None]
